FAERS Safety Report 8393845-7 (Version None)
Quarter: 2012Q2

REPORT INFORMATION
  Report Type: 
  Country: None (occurrence: None)
  Receive Date: 20120530
  Receipt Date: 20120524
  Transmission Date: 20120825
  Serious: No
  Sender: FDA-Public Use
  Company Number: US-PFIZER INC-2012126866

PATIENT
  Sex: Female
  Weight: 65.76 kg

DRUGS (2)
  1. ADVIL [Suspect]
     Indication: HEADACHE
     Dosage: UNK, AS NEEDED
     Route: 048
  2. ADVIL [Suspect]
     Dosage: UNK, AS NEEDED
     Route: 048
     Dates: start: 20111101, end: 20111201

REACTIONS (2)
  - FEELING ABNORMAL [None]
  - ILLUSION [None]
